FAERS Safety Report 16778906 (Version 2)
Quarter: 2020Q3

REPORT INFORMATION
  Report Type: Spontaneous
  Country: RO (occurrence: RO)
  Receive Date: 20190906
  Receipt Date: 20200903
  Transmission Date: 20201102
  Serious: Yes (Death, Other)
  Sender: FDA-Public Use
  Company Number: RO-TEVA-2019-RO-1102933

PATIENT
  Age: 68 Year
  Sex: Female

DRUGS (2)
  1. CYCLOPHOSPHAMIDE. [Suspect]
     Active Substance: CYCLOPHOSPHAMIDE
     Indication: INVASIVE BREAST CARCINOMA
     Dosage: RECEIVED TWO CYCLES OF CHEMOTHERAPY
     Route: 065
  2. EPIRUBICIN [Suspect]
     Active Substance: EPIRUBICIN
     Indication: INVASIVE BREAST CARCINOMA
     Dosage: RECEIVED TWO CYCLES OF CHEMOTHERAPY
     Route: 065

REACTIONS (16)
  - Hypotension [Fatal]
  - Clostridium difficile infection [Fatal]
  - Haemodynamic instability [Unknown]
  - Cardiac arrest [Fatal]
  - Electrolyte imbalance [Unknown]
  - Pleural effusion [Unknown]
  - Metabolic acidosis [Fatal]
  - Acute kidney injury [Fatal]
  - Hypokalaemia [Unknown]
  - Leukopenia [Unknown]
  - Pancreatitis acute [Fatal]
  - Secondary immunodeficiency [Fatal]
  - Neutropenia [Unknown]
  - Pancreatic necrosis [Unknown]
  - Septic shock [Fatal]
  - Bradycardia [Fatal]
